FAERS Safety Report 18707988 (Version 1)
Quarter: 2021Q1

REPORT INFORMATION
  Report Type: Spontaneous
  Country: CN (occurrence: CN)
  Receive Date: 20210106
  Receipt Date: 20210106
  Transmission Date: 20210419
  Serious: Yes (Hospitalization, Other)
  Sender: FDA-Public Use
  Company Number: CN-PFIZER INC-2021001030

PATIENT
  Age: 49 Year
  Sex: Male
  Weight: 80 kg

DRUGS (2)
  1. ANZATAX (PACLITAXEL) [Suspect]
     Active Substance: PACLITAXEL
     Indication: CHEMOTHERAPY
     Dosage: 270 MG, 2X/DAY
     Route: 041
     Dates: start: 20201203, end: 20201203
  2. JIE BAI SHU [Suspect]
     Active Substance: NEDAPLATIN
     Indication: CHEMOTHERAPY
     Dosage: 160 MG, 1X/DAY
     Route: 041
     Dates: start: 20201203, end: 20201203

REACTIONS (1)
  - Myelosuppression [Recovering/Resolving]

NARRATIVE: CASE EVENT DATE: 20201215
